FAERS Safety Report 6343370-X (Version None)
Quarter: 2009Q3

REPORT INFORMATION
  Report Type: 
  Country: None (occurrence: None)
  Receive Date: 20090908
  Receipt Date: 20090901
  Transmission Date: 20100115
  Serious: Yes (Disabling, Other)
  Sender: FDA-Public Use
  Company Number: PHHO2009NO08331

PATIENT
  Sex: Male

DRUGS (2)
  1. RAD 666 RAD++PTR [Suspect]
     Indication: HEART TRANSPLANT
     Dosage: OPEN LABEL
     Dates: start: 20080226
  2. TACROLIMUS [Suspect]
     Indication: HEART TRANSPLANT
     Dosage: OPEN LABEL
     Dates: start: 20070101, end: 20090630

REACTIONS (2)
  - DIABETES MELLITUS INADEQUATE CONTROL [None]
  - MYALGIA [None]
